FAERS Safety Report 9351304 (Version 1)
Quarter: 2013Q2

REPORT INFORMATION
  Report Type: Spontaneous
  Country: DE (occurrence: DE)
  Receive Date: 20130617
  Receipt Date: 20130617
  Transmission Date: 20140414
  Serious: Yes (Other)
  Sender: FDA-Public Use
  Company Number: GXKR2013DE002113

PATIENT
  Sex: Female

DRUGS (2)
  1. VERAPAMIL [Suspect]
     Dosage: UNK MG, UNK
     Route: 048
  2. CLOPIDOGREL [Interacting]
     Dosage: UNK MG, UNK
     Route: 048

REACTIONS (1)
  - Hypertension [Unknown]
